FAERS Safety Report 18954112 (Version 2)
Quarter: 2021Q2

REPORT INFORMATION
  Report Type: Report from Study
  Country: JP (occurrence: JP)
  Receive Date: 20210301
  Receipt Date: 20210427
  Transmission Date: 20210717
  Serious: Yes (Hospitalization, Other)
  Sender: FDA-Public Use
  Company Number: JP-GLAXOSMITHKLINE-JP2021JPN053446

PATIENT
  Age: 9 Decade
  Sex: Female
  Weight: 46.5 kg

DRUGS (57)
  1. MEPOLIZUMAB [Suspect]
     Active Substance: MEPOLIZUMAB
     Indication: EOSINOPHILIC GRANULOMATOSIS WITH POLYANGIITIS
     Dosage: 300 MG
     Route: 058
     Dates: start: 20181113, end: 20181113
  2. MEPOLIZUMAB [Suspect]
     Active Substance: MEPOLIZUMAB
     Dosage: 300 MG
     Route: 058
     Dates: start: 20190212, end: 20190212
  3. MEPOLIZUMAB [Suspect]
     Active Substance: MEPOLIZUMAB
     Dosage: 200 MG
     Route: 058
     Dates: start: 20200310, end: 20200310
  4. PREDNISOLONE. [Suspect]
     Active Substance: PREDNISOLONE
     Dosage: 10 MG, 1D
     Dates: start: 20181113, end: 20181217
  5. PREDNISOLONE. [Suspect]
     Active Substance: PREDNISOLONE
     Dosage: 7 MG, 1D
     Dates: start: 20190115, end: 20190211
  6. PREDNISOLONE. [Suspect]
     Active Substance: PREDNISOLONE
     Dosage: 3 MG, 1D
     Dates: start: 20200728
  7. CILNIDIPINE [Concomitant]
     Active Substance: CILNIDIPINE
  8. SPIRONOLACTONE. [Concomitant]
     Active Substance: SPIRONOLACTONE
  9. CALFINA [Concomitant]
  10. MEPOLIZUMAB [Suspect]
     Active Substance: MEPOLIZUMAB
     Dosage: 300 MG
     Route: 058
     Dates: start: 20190319, end: 20190319
  11. MEPOLIZUMAB [Suspect]
     Active Substance: MEPOLIZUMAB
     Dosage: 300 MG
     Route: 058
     Dates: start: 20190521, end: 20190521
  12. MEPOLIZUMAB [Suspect]
     Active Substance: MEPOLIZUMAB
     Dosage: 300 MG
     Route: 058
     Dates: start: 20190820, end: 20190820
  13. MEPOLIZUMAB [Suspect]
     Active Substance: MEPOLIZUMAB
     Dosage: 300 MG
     Route: 058
     Dates: start: 20190917, end: 20190917
  14. MEPOLIZUMAB [Suspect]
     Active Substance: MEPOLIZUMAB
     Dosage: 200 MG
     Route: 058
     Dates: start: 20200728, end: 20200728
  15. PREDNISOLONE. [Suspect]
     Active Substance: PREDNISOLONE
     Dosage: 6 MG, 1D
     Dates: start: 20190212, end: 20190318
  16. PREDNISOLONE. [Suspect]
     Active Substance: PREDNISOLONE
     Dosage: 5 MG, 1D
     Dates: start: 20190319, end: 20190624
  17. PREDNISOLONE. [Suspect]
     Active Substance: PREDNISOLONE
     Dosage: 20 MG, 1D
     Dates: start: 20190625, end: 20190708
  18. FLUTIFORM AEROSOL [Concomitant]
     Active Substance: FLUTICASONE PROPIONATE\FORMOTEROL FUMARATE
     Indication: EOSINOPHILIC GRANULOMATOSIS WITH POLYANGIITIS
     Dosage: 500 ?G, 1D
     Route: 055
     Dates: start: 20190820
  19. SULFAMETHOXAZOLE/TRIMETHOPRIM TABLETS [Concomitant]
     Active Substance: SULFAMETHOXAZOLE\TRIMETHOPRIM
     Indication: ANTIFUNGAL PROPHYLAXIS
  20. TOLVAPTAN [Concomitant]
     Active Substance: TOLVAPTAN
  21. ZOLPIDEM TARTRATE. [Concomitant]
     Active Substance: ZOLPIDEM TARTRATE
  22. KETOPROFEN TAPE [Concomitant]
  23. DAIPHEN [Concomitant]
     Active Substance: SULFAMETHOXAZOLE\TRIMETHOPRIM
     Indication: ANTIFUNGAL PROPHYLAXIS
  24. LYRICA [Concomitant]
     Active Substance: PREGABALIN
     Indication: EOSINOPHILIC GRANULOMATOSIS WITH POLYANGIITIS
  25. MEPOLIZUMAB [Suspect]
     Active Substance: MEPOLIZUMAB
     Dosage: 300 MG
     Route: 058
     Dates: start: 20190115, end: 20190115
  26. MEPOLIZUMAB [Suspect]
     Active Substance: MEPOLIZUMAB
     Dosage: 300 MG
     Route: 058
     Dates: start: 20191015, end: 20191015
  27. SERETIDE [Suspect]
     Active Substance: FLUTICASONE PROPIONATE\SALMETEROL XINAFOATE
     Indication: EOSINOPHILIC GRANULOMATOSIS WITH POLYANGIITIS
     Dosage: 500 ?G, 1D
     Route: 055
     Dates: end: 20190819
  28. URSODEOXYCHOLIC ACID [Concomitant]
     Active Substance: URSODIOL
  29. RABEPRAZOLE SODIUM. [Concomitant]
     Active Substance: RABEPRAZOLE SODIUM
     Indication: PROPHYLAXIS
  30. MEPOLIZUMAB [Suspect]
     Active Substance: MEPOLIZUMAB
     Dosage: 300 MG
     Route: 058
     Dates: start: 20190424, end: 20190424
  31. MEPOLIZUMAB [Suspect]
     Active Substance: MEPOLIZUMAB
     Dosage: 300 MG
     Route: 058
     Dates: start: 20191112, end: 20191112
  32. MEPOLIZUMAB [Suspect]
     Active Substance: MEPOLIZUMAB
     Dosage: 200 MG
     Route: 058
     Dates: start: 20200414, end: 20200414
  33. PREDNISOLONE. [Suspect]
     Active Substance: PREDNISOLONE
     Dosage: 15 MG, 1D
     Dates: start: 20181107, end: 20181112
  34. PREDNISOLONE. [Suspect]
     Active Substance: PREDNISOLONE
     Dosage: 5 MG, 1D
     Dates: start: 20190717, end: 20191111
  35. ROSUVASTATIN (ROSUVASTATIN CALCIUM) [Concomitant]
     Active Substance: ROSUVASTATIN CALCIUM
  36. MEPOLIZUMAB [Suspect]
     Active Substance: MEPOLIZUMAB
     Dosage: 200 MG
     Route: 058
     Dates: start: 20200107, end: 20200107
  37. MEPOLIZUMAB [Suspect]
     Active Substance: MEPOLIZUMAB
     Dosage: 200 MG
     Route: 058
     Dates: start: 20200901, end: 20200901
  38. PREDNISOLONE. [Suspect]
     Active Substance: PREDNISOLONE
     Dosage: 8 MG, 1D
     Dates: start: 20181218, end: 20190114
  39. PREDNISOLONE. [Suspect]
     Active Substance: PREDNISOLONE
     Dosage: 4 MG, 1D
     Dates: start: 20191112, end: 20200727
  40. OLOPATADINE HYDROCHLORIDE. [Concomitant]
     Active Substance: OLOPATADINE HYDROCHLORIDE
  41. FUROSEMIDE. [Concomitant]
     Active Substance: FUROSEMIDE
  42. DICLOFENAC SODIUM GEL [Concomitant]
     Active Substance: DICLOFENAC SODIUM
  43. PRALIA [Concomitant]
     Active Substance: DENOSUMAB
  44. MEPOLIZUMAB [Suspect]
     Active Substance: MEPOLIZUMAB
     Dosage: 300 MG
     Route: 058
     Dates: start: 20190724, end: 20190724
  45. CARBOCISTEINE [Concomitant]
     Active Substance: CARBOCYSTEINE
     Indication: PROPHYLAXIS
  46. MEPOLIZUMAB [Suspect]
     Active Substance: MEPOLIZUMAB
     Dosage: 300 MG
     Route: 058
     Dates: start: 20181218, end: 20181218
  47. MEPOLIZUMAB [Suspect]
     Active Substance: MEPOLIZUMAB
     Dosage: 300 MG
     Route: 058
     Dates: start: 20190625, end: 20190625
  48. MEPOLIZUMAB [Suspect]
     Active Substance: MEPOLIZUMAB
     Dosage: 200 MG
     Route: 058
     Dates: start: 20200623, end: 20200623
  49. PREDNISOLONE. [Suspect]
     Active Substance: PREDNISOLONE
     Indication: EOSINOPHILIC GRANULOMATOSIS WITH POLYANGIITIS
     Dosage: 7 MG, 1D
     Dates: end: 20181022
  50. PREDNISOLONE. [Suspect]
     Active Substance: PREDNISOLONE
     Indication: PROPHYLAXIS
     Dosage: 30 MG, 1D
     Dates: start: 20181023, end: 20181106
  51. PREDNISOLONE. [Suspect]
     Active Substance: PREDNISOLONE
     Dosage: 15 MG, 1D
     Dates: start: 20190712, end: 20190716
  52. ALFACALCIDOL [Concomitant]
     Active Substance: ALFACALCIDOL
  53. PREGABALIN. [Concomitant]
     Active Substance: PREGABALIN
     Indication: EOSINOPHILIC GRANULOMATOSIS WITH POLYANGIITIS
  54. SAMSCA [Concomitant]
     Active Substance: TOLVAPTAN
  55. MEPOLIZUMAB [Suspect]
     Active Substance: MEPOLIZUMAB
     Dosage: 300 MG
     Route: 058
     Dates: start: 20191210, end: 20191210
  56. MEPOLIZUMAB [Suspect]
     Active Substance: MEPOLIZUMAB
     Dosage: 200 MG
     Route: 058
     Dates: start: 20200204, end: 20200204
  57. PREDNISOLONE. [Suspect]
     Active Substance: PREDNISOLONE
     Dosage: 5 MG, 1D
     Dates: start: 20190709, end: 20190711

REACTIONS (8)
  - Eczema [Not Recovered/Not Resolved]
  - Inappropriate schedule of product administration [Unknown]
  - Septic shock [Recovering/Resolving]
  - Pneumonia [Recovering/Resolving]
  - Prescribed underdose [Unknown]
  - Urinary tract infection [Recovering/Resolving]
  - Asthma [Recovering/Resolving]
  - Product use in unapproved indication [Unknown]

NARRATIVE: CASE EVENT DATE: 20190424
